FAERS Safety Report 15368210 (Version 1)
Quarter: 2018Q3

REPORT INFORMATION
  Report Type: Spontaneous
  Country: US (occurrence: US)
  Receive Date: 20180904
  Receipt Date: 20180904
  Transmission Date: 20181010
  Serious: Yes (Hospitalization)
  Sender: FDA-Public Use
  Company Number: None

PATIENT
  Age: 75 Year
  Sex: Female

DRUGS (3)
  1. CIPROFLOXACIN. [Suspect]
     Active Substance: CIPROFLOXACIN
  2. DOFETILIDE. [Concomitant]
     Active Substance: DOFETILIDE
     Dates: start: 20180317
  3. DOFETILIDE. [Suspect]
     Active Substance: DOFETILIDE
     Dosage: ?          OTHER FREQUENCY:EVERY 12 HOURS;?
     Route: 048
     Dates: start: 20180307

REACTIONS (2)
  - Condition aggravated [None]
  - Drug interaction [None]

NARRATIVE: CASE EVENT DATE: 20180831
